FAERS Safety Report 5700743-3 (Version None)
Quarter: 2008Q2

REPORT INFORMATION
  Report Type: 
  Country: None (occurrence: None)
  Receive Date: 20080410
  Receipt Date: 20080324
  Transmission Date: 20081010
  Serious: No
  Sender: FDA-Public Use
  Company Number: A0710997A

PATIENT
  Age: 86 Year
  Sex: Female

DRUGS (7)
  1. TYKERB [Suspect]
     Indication: BREAST CANCER
     Dosage: 1000MG PER DAY
     Route: 048
     Dates: start: 20080101
  2. WELLBUTRIN [Concomitant]
     Route: 048
  3. AVAPRO [Concomitant]
  4. OMACOR [Concomitant]
  5. ASPIRIN [Concomitant]
  6. VITAMINS [Concomitant]
  7. CALCIUM D [Concomitant]

REACTIONS (1)
  - DIARRHOEA [None]
